FAERS Safety Report 7263308-0 (Version None)
Quarter: 2011Q1

REPORT INFORMATION
  Report Type: 
  Country: None (occurrence: None)
  Receive Date: 20110130
  Receipt Date: 20100922
  Transmission Date: 20110831
  Serious: No
  Sender: FDA-Public Use
  Company Number: US-ABBOTT-10P-163-0673325-00

PATIENT
  Weight: 65.83 kg

DRUGS (6)
  1. METHOTREXATE [Concomitant]
     Indication: PRODUCT USED FOR UNKNOWN INDICATION
  2. HUMIRA [Suspect]
     Indication: RHEUMATOID ARTHRITIS
     Dates: start: 20080601
  3. FOLIC ACID [Concomitant]
     Indication: PRODUCT USED FOR UNKNOWN INDICATION
  4. TRIAMTERENE [Concomitant]
     Indication: HYPERTENSION
  5. ALLEGRA [Concomitant]
     Indication: PRODUCT USED FOR UNKNOWN INDICATION
  6. LYSINE [Concomitant]
     Indication: ORAL HERPES
     Route: 048

REACTIONS (5)
  - BURNING SENSATION [None]
  - EYE PAIN [None]
  - FACIAL PAIN [None]
  - SKIN PAPILLOMA [None]
  - ORAL HERPES [None]
